FAERS Safety Report 8955737 (Version 1)
Quarter: 2012Q4

REPORT INFORMATION
  Report Type: 
  Country: NL (occurrence: NL)
  Receive Date: 20121210
  Receipt Date: 20121210
  Transmission Date: 20130627
  Serious: No
  Sender: FDA-Public Use
  Company Number: NL-009507513-1211NLD006573

PATIENT
  Age: 26 Year
  Sex: Female

DRUGS (1)
  1. ZOELY [Suspect]
     Indication: CONTRACEPTION
     Dosage: UNK
     Route: 048
     Dates: start: 20120730

REACTIONS (2)
  - Unintended pregnancy [Unknown]
  - Diarrhoea [Unknown]
